FAERS Safety Report 11255957 (Version 7)
Quarter: 2016Q3

REPORT INFORMATION
  Report Type: Report from Study
  Country: DE (occurrence: DE)
  Receive Date: 20150709
  Receipt Date: 20160928
  Transmission Date: 20161109
  Serious: Yes (Hospitalization, Other)
  Sender: FDA-Public Use
  Company Number: PHHY2015DE081939

PATIENT
  Sex: Male
  Weight: 67.7 kg

DRUGS (13)
  1. ALLOPURINOL. [Concomitant]
     Active Substance: ALLOPURINOL
     Indication: HYPERURICAEMIA
     Dosage: 300 MG, QD
     Route: 048
     Dates: start: 20131104
  2. ATORVASTATIN [Concomitant]
     Active Substance: ATORVASTATIN
     Indication: HYPERCHOLESTEROLAEMIA
     Dosage: 20 MG, QD
     Route: 048
     Dates: start: 20131104
  3. TOREM [Concomitant]
     Active Substance: TORSEMIDE
     Indication: PRODUCT USED FOR UNKNOWN INDICATION
     Dosage: 10 MG, (?-0-0)
     Route: 065
  4. PANTOZOL [Concomitant]
     Active Substance: PANTOPRAZOLE SODIUM
     Indication: GASTRIC ULCER
     Dosage: 40 MG, QD
     Route: 048
     Dates: start: 20080624
  5. DELIX [Suspect]
     Active Substance: RAMIPRIL
     Indication: CORONARY ARTERY DISEASE
     Dosage: 5 MG, QD (MORNING)
     Route: 065
     Dates: start: 20131104, end: 20141110
  6. ZYLORIC [Concomitant]
     Active Substance: ALLOPURINOL
     Indication: PRODUCT USED FOR UNKNOWN INDICATION
     Dosage: 100 MG, QD (0-0-1)
     Route: 065
  7. XIPAMIDE [Suspect]
     Active Substance: XIPAMIDE
     Indication: SEPSIS
     Dosage: 10 MG, QD (MORNING)
     Route: 065
     Dates: start: 20140903, end: 20141110
  8. DELIX [Suspect]
     Active Substance: RAMIPRIL
     Indication: HYPERTENSION
  9. METOHEXAL [Concomitant]
     Active Substance: METOPROLOL SUCCINATE
     Indication: CORONARY ARTERY DISEASE
     Dosage: 142.5 MG, QD
     Route: 048
     Dates: start: 20031104
  10. TASIGNA [Suspect]
     Active Substance: NILOTINIB
     Indication: CHRONIC MYELOID LEUKAEMIA
     Dosage: 600 MG, QD
     Route: 048
     Dates: start: 20131101
  11. LYRICA [Concomitant]
     Active Substance: PREGABALIN
     Indication: PRODUCT USED FOR UNKNOWN INDICATION
     Dosage: 50 MG, BID (1-0-1)
     Route: 065
  12. RAMIPRIL. [Concomitant]
     Active Substance: RAMIPRIL
     Indication: HYPERTENSION
     Dosage: 5 MG, QD
     Route: 048
     Dates: start: 20131104
  13. TASIGNA [Suspect]
     Active Substance: NILOTINIB
     Dosage: 600 MG, QD
     Route: 048
     Dates: start: 20131213

REACTIONS (21)
  - Myelodysplastic syndrome [Unknown]
  - Gangrene [Recovered/Resolved with Sequelae]
  - Peripheral arterial occlusive disease [Not Recovered/Not Resolved]
  - White blood cell count increased [Unknown]
  - Peripheral artery stenosis [Unknown]
  - Peripheral swelling [Unknown]
  - Sepsis [Recovered/Resolved with Sequelae]
  - Necrosis [Unknown]
  - Renal failure [Recovered/Resolved]
  - Atrial flutter [Unknown]
  - Intermittent claudication [Unknown]
  - Urinary retention [Unknown]
  - Erythema [Unknown]
  - Pain [Unknown]
  - Peripheral artery occlusion [Unknown]
  - C-reactive protein increased [Unknown]
  - Splenomegaly [Unknown]
  - Osteolysis [Unknown]
  - Infection [Recovered/Resolved with Sequelae]
  - Wound [Unknown]
  - Oedema peripheral [Unknown]

NARRATIVE: CASE EVENT DATE: 20140903
